FAERS Safety Report 14526517 (Version 3)
Quarter: 2018Q1

REPORT INFORMATION
  Report Type: Spontaneous
  Country: US (occurrence: US)
  Receive Date: 20180213
  Receipt Date: 20180302
  Transmission Date: 20180509
  Serious: Yes (Hospitalization)
  Sender: FDA-Public Use
  Company Number: US-CELGENEUS-USA-20180202508

PATIENT
  Age: 71 Year
  Sex: Male
  Weight: 79.45 kg

DRUGS (2)
  1. LASIX [Concomitant]
     Active Substance: FUROSEMIDE
     Indication: OEDEMA
     Dosage: 320 MILLIGRAM
     Route: 065
  2. REVLIMID [Suspect]
     Active Substance: LENALIDOMIDE
     Indication: PLASMA CELL MYELOMA
     Dosage: 25 MILLIGRAM
     Route: 048
     Dates: start: 20180109

REACTIONS (10)
  - Oedema peripheral [Not Recovered/Not Resolved]
  - Gait inability [Not Recovered/Not Resolved]
  - Red blood cell count decreased [Unknown]
  - Sepsis [Unknown]
  - Pneumonia [Not Recovered/Not Resolved]
  - Lactic acidosis [Unknown]
  - Hypokalaemia [Unknown]
  - Hyponatraemia [Unknown]
  - Acute respiratory failure [Unknown]
  - Weight increased [Not Recovered/Not Resolved]

NARRATIVE: CASE EVENT DATE: 20180127
